FAERS Safety Report 14198915 (Version 3)
Quarter: 2017Q4

REPORT INFORMATION
  Report Type: Spontaneous
  Country: CA (occurrence: CA)
  Receive Date: 20171117
  Receipt Date: 20171229
  Transmission Date: 20180321
  Serious: Yes (Hospitalization, Other)
  Sender: FDA-Public Use
  Company Number: CA-AMGEN-CANSP2017171678

PATIENT
  Age: 52 Year
  Sex: Female
  Weight: 39.4 kg

DRUGS (20)
  1. ARANESP [Suspect]
     Active Substance: DARBEPOETIN ALFA
     Dosage: 60 MUG, QWK
     Route: 058
     Dates: start: 20170622, end: 20170731
  2. MINERAL OIL. [Concomitant]
     Active Substance: MINERAL OIL
     Dosage: 15 ML, QOD
     Route: 048
     Dates: start: 20170622
  3. HUMULIN N [Concomitant]
     Active Substance: INSULIN HUMAN
     Dosage: 5 UNIT, QD
     Route: 058
     Dates: start: 20171003
  4. SIMVASTATIN. [Concomitant]
     Active Substance: SIMVASTATIN
     Dosage: 10 MG, UNK
     Route: 048
     Dates: end: 20171108
  5. NEORAL [Concomitant]
     Active Substance: CYCLOSPORINE
     Dosage: 25 MG, BID
     Route: 048
     Dates: start: 20170508
  6. PREDNISONE. [Concomitant]
     Active Substance: PREDNISONE
     Dosage: 5 MG, QD
     Route: 048
     Dates: start: 20170508
  7. CALCITRIOL. [Concomitant]
     Active Substance: CALCITRIOL
     Dosage: 0.25 MUG, QD
     Route: 048
     Dates: start: 20170621
  8. SENNA [Concomitant]
     Active Substance: SENNA LEAF\SENNOSIDES\SENNOSIDES A AND B
     Dosage: 17.2 MG, AS NECESSARY
     Route: 048
     Dates: start: 20170622
  9. RISEDRONATE [Concomitant]
     Active Substance: RISEDRONATE SODIUM
     Dosage: 35 MG, UNK
     Route: 048
     Dates: end: 20171108
  10. ARANESP [Suspect]
     Active Substance: DARBEPOETIN ALFA
     Dosage: 90 MUG, UNK
     Route: 058
     Dates: start: 20170801, end: 20171108
  11. MULTIVITAMIN [Concomitant]
     Active Substance: VITAMINS
     Dosage: 1 DF, QD
     Route: 048
     Dates: start: 20170622
  12. CALCIUM CARBONATE. [Concomitant]
     Active Substance: CALCIUM CARBONATE
     Dosage: 1250 MG, QD
     Route: 048
     Dates: start: 20170622
  13. HUMULIN R [Concomitant]
     Active Substance: INSULIN HUMAN
     Dosage: 4 UNIT, UNK
     Route: 058
     Dates: start: 20171003
  14. DOMPERIDONE [Concomitant]
     Active Substance: DOMPERIDONE
     Dosage: 10 MG, TID
     Route: 048
     Dates: start: 20170620
  15. LASIX [Concomitant]
     Active Substance: FUROSEMIDE
     Dosage: 40 MG, QD
     Route: 048
     Dates: end: 20171108
  16. PEGLYTE [Concomitant]
     Active Substance: POLYETHYLENE GLYCOL 3350\POTASSIUM CHLORIDE\SODIUM BICARBONATE\SODIUM CHLORIDE\SODIUM SULFATE
     Dosage: 1 L, QD
     Route: 048
     Dates: start: 20170718
  17. SEPTRA [Concomitant]
     Active Substance: SULFAMETHOXAZOLE\TRIMETHOPRIM
     Dosage: 1 DF, UNK
     Route: 048
     Dates: end: 20171108
  18. LANSOPRAZOLE. [Concomitant]
     Active Substance: LANSOPRAZOLE
     Dosage: 30 MG, UNK
     Route: 048
     Dates: end: 20171108
  19. ARANESP [Suspect]
     Active Substance: DARBEPOETIN ALFA
     Indication: ANAEMIA
     Dosage: 30 MUG, QWK
     Route: 058
     Dates: start: 20170531, end: 20170622
  20. RANITIDINE. [Concomitant]
     Active Substance: RANITIDINE
     Dosage: 150 MG, UNK
     Route: 048
     Dates: start: 20170622

REACTIONS (6)
  - Anaemia [Not Recovered/Not Resolved]
  - Gastric ulcer [Unknown]
  - Epstein-Barr virus infection [Unknown]
  - Sepsis [Unknown]
  - Urinary tract infection [Unknown]
  - Drug ineffective [Unknown]

NARRATIVE: CASE EVENT DATE: 2017
